FAERS Safety Report 17063110 (Version 1)
Quarter: 2019Q4

REPORT INFORMATION
  Report Type: Spontaneous
  Country: SA (occurrence: SA)
  Receive Date: 20191122
  Receipt Date: 20191122
  Transmission Date: 20200122
  Serious: Yes (Death, Other)
  Sender: FDA-Public Use
  Company Number: SA-ASTELLAS-2019US046035

PATIENT
  Age: 60 Year
  Sex: Female

DRUGS (1)
  1. AMPHOTERICIN B, LIPOSOME [Suspect]
     Active Substance: AMPHOTERICIN B
     Indication: SYSTEMIC MYCOSIS
     Dosage: 3 UNKNOWN UNITS, UNKNOWN FREQ.
     Route: 042

REACTIONS (2)
  - Hyperkalaemia [Fatal]
  - Cardiac arrest [Fatal]
